FAERS Safety Report 13190842 (Version 2)
Quarter: 2017Q1

REPORT INFORMATION
  Report Type: Report from Study
  Country: FR (occurrence: FR)
  Receive Date: 20170206
  Receipt Date: 20170323
  Transmission Date: 20170428
  Serious: Yes (Hospitalization, Other)
  Sender: FDA-Public Use
  Company Number: FR-BAXTER-2016BAX047233

PATIENT
  Age: 69 Year
  Sex: Female

DRUGS (64)
  1. SPIRONOLACTONE. [Concomitant]
     Active Substance: SPIRONOLACTONE
     Indication: HYPERTENSION
     Route: 065
  2. LOVENOX [Concomitant]
     Active Substance: ENOXAPARIN SODIUM
     Indication: ANTICOAGULANT THERAPY
     Route: 065
     Dates: start: 20160728
  3. SODIUM CHLORIDE. [Concomitant]
     Active Substance: SODIUM CHLORIDE
     Indication: HYPONATRAEMIA
     Route: 065
     Dates: start: 20160805, end: 20160805
  4. CLAFORAN [Concomitant]
     Active Substance: CEFOTAXIME SODIUM
     Indication: PYELONEPHRITIS
     Route: 065
     Dates: start: 20160805, end: 20160813
  5. MOVICOL [Concomitant]
     Active Substance: POLYETHYLENE GLYCOL 3350\POTASSIUM CHLORIDE\SODIUM BICARBONATE\SODIUM CHLORIDE
     Indication: CONSTIPATION
     Route: 065
  6. ENDOXAN 1000 MG, POUDRE POUR SOLUTION INJECTABLE [Suspect]
     Active Substance: CYCLOPHOSPHAMIDE
     Dosage: MOST RECENT DOSE PRIOR TO THE EVENT NEUTROPENIA FEBRILE (SECOND EPISODE) AND SEPSIS E.COLI
     Route: 042
     Dates: start: 20160908
  7. RITUXIMAB [Suspect]
     Active Substance: RITUXIMAB
     Route: 042
     Dates: start: 20160929
  8. PREDNISONE. [Suspect]
     Active Substance: PREDNISONE
     Indication: B-CELL LYMPHOMA
     Dosage: DAY 1-5 OF 21 DAY CYCLE
     Route: 048
     Dates: start: 20160616
  9. PREDNISONE. [Suspect]
     Active Substance: PREDNISONE
     Dosage: DAY 1-5 OF 21 DAY CYCLE, MOST RECENT DOSE PRIOR TO THE EVENT NEUTROPENIA FEBRILE (SECOND EPISODE) AN
     Route: 048
     Dates: start: 20160912
  10. DOXORUBICIN [Suspect]
     Active Substance: DOXORUBICIN
     Indication: B-CELL LYMPHOMA
     Route: 042
     Dates: start: 20160617
  11. DOXORUBICIN [Suspect]
     Active Substance: DOXORUBICIN
     Dosage: MOST RECENT DOSE
     Route: 042
     Dates: start: 20160929
  12. VINCRISTINE [Suspect]
     Active Substance: VINCRISTINE
     Dosage: MOST RECENT DOSE PRIOR TO THE FEBRILE NEUTROPENIA FIRST EPISODE
     Route: 040
     Dates: start: 20160817
  13. VINCRISTINE [Suspect]
     Active Substance: VINCRISTINE
     Dosage: MOST RECENT DOSE PRIOR TO THE EVENT NEUTROPENIA FEBRILE (SECOND EPISODE) AND SEPSIS E.COLI
     Route: 040
     Dates: start: 20160908
  14. VENETOCLAX [Suspect]
     Active Substance: VENETOCLAX
     Indication: B-CELL LYMPHOMA
     Route: 048
     Dates: start: 20160620
  15. PRIMPERAN [Concomitant]
     Active Substance: METOCLOPRAMIDE HYDROCHLORIDE
     Indication: NAUSEA
     Route: 065
     Dates: start: 20160622
  16. ZARZIO [Concomitant]
     Active Substance: FILGRASTIM
     Indication: PROPHYLAXIS
     Dosage: REPORTED AS ZARZIO 30
     Route: 065
     Dates: start: 20160802, end: 20160806
  17. ZELITREX [Concomitant]
     Active Substance: VALACYCLOVIR HYDROCHLORIDE
     Indication: INFECTION
     Route: 065
     Dates: start: 20160616
  18. LEVEMIR [Concomitant]
     Active Substance: INSULIN DETEMIR
     Indication: DIABETES MELLITUS INADEQUATE CONTROL
     Route: 065
     Dates: start: 20160729
  19. POLARAMINE [Concomitant]
     Active Substance: DEXCHLORPHENIRAMINE MALEATE
     Route: 065
     Dates: start: 20160908, end: 20160908
  20. PERFALGAN [Concomitant]
     Active Substance: ACETAMINOPHEN
     Route: 065
     Dates: start: 20160908, end: 20160908
  21. SOLU-MEDROL [Concomitant]
     Active Substance: METHYLPREDNISOLONE SODIUM SUCCINATE
     Indication: HEMIPARESIS
     Route: 065
     Dates: start: 20160804, end: 20160804
  22. ENDOXAN 1000 MG, POUDRE POUR SOLUTION INJECTABLE [Suspect]
     Active Substance: CYCLOPHOSPHAMIDE
     Dosage: MOST RECENT DOSE
     Route: 042
     Dates: start: 20160929
  23. RITUXIMAB [Suspect]
     Active Substance: RITUXIMAB
     Indication: B-CELL LYMPHOMA
     Route: 042
     Dates: start: 20160616
  24. RITUXIMAB [Suspect]
     Active Substance: RITUXIMAB
     Dosage: MOST RECENT DOSE PRIOR TO THE FEBRILE NEUTROPENIA FIRST EPISODE
     Route: 042
     Dates: start: 20160817
  25. DOXORUBICIN [Suspect]
     Active Substance: DOXORUBICIN
     Dosage: MOST RECENT DOSE PRIOR TO THE EVENT NEUTROPENIA FEBRILE (SECOND EPISODE) AND SEPSIS E.COLI
     Route: 042
     Dates: start: 20160908
  26. VENETOCLAX [Suspect]
     Active Substance: VENETOCLAX
     Dosage: MOST RECENT DOSE PRIOR TO THE FEBRILE NEUTROPENIA FIRST EPISODE
     Route: 048
     Dates: start: 20160826
  27. METFORMIN [Concomitant]
     Active Substance: METFORMIN HYDROCHLORIDE
     Indication: DIABETES MELLITUS
     Route: 065
  28. ZOPHREN [Concomitant]
     Active Substance: ONDANSETRON
     Indication: VOMITING
  29. PHOSPHONEUROS [Concomitant]
     Active Substance: CALCIUM PHOSPHATE, DIBASIC, ANHYDROUS\MAGNESIUM GLYCEROPHOSPHATE\PHOSPHORIC ACID\SODIUM PHOSPHATE, DIBASIC
     Indication: HYPOPHOSPHATAEMIA
     Route: 065
     Dates: start: 20160805, end: 20160805
  30. DIFFU K [Concomitant]
     Active Substance: POTASSIUM CHLORIDE
     Indication: HYPOKALAEMIA
     Route: 065
     Dates: start: 20160805, end: 20160805
  31. RED BLOOD CELLS [Concomitant]
     Active Substance: HUMAN RED BLOOD CELL
     Indication: ANAEMIA
     Route: 065
     Dates: start: 20160804, end: 20160804
  32. PREDNISONE. [Suspect]
     Active Substance: PREDNISONE
     Dosage: DAY 1-5 OF 21 DAY CYCLE, MOST RECENT DOSE PRIOR TO THE FEBRILE NEUTROPENIA FIRST EPISODE
     Route: 048
     Dates: start: 20160821
  33. PREDNISONE. [Suspect]
     Active Substance: PREDNISONE
     Dosage: DAY 1-5 OF 21 DAY CYCLE, MOST RECENT DOSE
     Route: 048
     Dates: start: 20160930
  34. VENETOCLAX [Suspect]
     Active Substance: VENETOCLAX
     Dosage: MOST RECENT DOSE PRIOR TO THE EVENT NEUTROPENIA FEBRILE (SECOND EPISODE) AND SEPSIS E.COLI
     Route: 048
     Dates: start: 20160916
  35. ALTIZIDE [Concomitant]
     Active Substance: ALTHIAZIDE
     Indication: HYPERTENSION
     Route: 065
  36. INEXIUM [Concomitant]
     Active Substance: ESOMEPRAZOLE
     Indication: GASTROOESOPHAGEAL REFLUX DISEASE
     Route: 065
  37. SKENAN [Concomitant]
     Active Substance: MORPHINE SULFATE
     Indication: PAIN
     Route: 065
  38. LEDERFOLINE [Concomitant]
     Active Substance: LEUCOVORIN CALCIUM
     Indication: INFECTION PROPHYLAXIS
     Route: 065
     Dates: start: 20160616
  39. ZOPHREN [Concomitant]
     Active Substance: ONDANSETRON
     Indication: NAUSEA
     Route: 065
     Dates: start: 20160617
  40. POLARAMINE [Concomitant]
     Active Substance: DEXCHLORPHENIRAMINE MALEATE
     Indication: PREMEDICATION
     Route: 065
     Dates: start: 20160728, end: 20160728
  41. POLARAMINE [Concomitant]
     Active Substance: DEXCHLORPHENIRAMINE MALEATE
     Route: 065
     Dates: start: 20160817, end: 20160817
  42. POLARAMINE [Concomitant]
     Active Substance: DEXCHLORPHENIRAMINE MALEATE
     Route: 065
     Dates: start: 20160929, end: 20160929
  43. VINCRISTINE [Suspect]
     Active Substance: VINCRISTINE
     Indication: B-CELL LYMPHOMA
     Dosage: WITH CAP OF 2.0 MG
     Route: 040
     Dates: start: 20160617
  44. VINCRISTINE [Suspect]
     Active Substance: VINCRISTINE
     Dosage: MOST RECENT DOSE
     Route: 040
     Dates: start: 20160929
  45. AMIKACINE [Concomitant]
     Active Substance: AMIKACIN
     Indication: ESCHERICHIA PYELONEPHRITIS
     Route: 065
     Dates: start: 20160805, end: 20160805
  46. RED BLOOD CELLS [Concomitant]
     Active Substance: HUMAN RED BLOOD CELL
     Route: 065
     Dates: start: 20161005, end: 20161006
  47. ZARZIO [Concomitant]
     Active Substance: FILGRASTIM
     Dosage: REPORTED AS ZARZIO 30
     Route: 065
     Dates: start: 20160822, end: 20160826
  48. PHOCYTAN [Concomitant]
     Active Substance: .ALPHA.-GLUCOSE-1-PHOSPHATE
     Indication: HYPOPHOSPHATAEMIA
     Route: 065
     Dates: start: 20160805, end: 20160811
  49. ZOMETA [Concomitant]
     Active Substance: ZOLEDRONIC ACID
     Indication: PROPHYLAXIS
     Route: 065
     Dates: start: 20160813, end: 20160813
  50. ENDOXAN 1000 MG, POUDRE POUR SOLUTION INJECTABLE [Suspect]
     Active Substance: CYCLOPHOSPHAMIDE
     Dosage: MOST RECENT DOSE PRIOR TO THE FEBRILE NEUTROPENIA FIRST EPISODE
     Route: 042
     Dates: start: 20160817
  51. ACTISKENAN [Concomitant]
     Active Substance: MORPHINE SULFATE
     Indication: PAIN
     Route: 065
  52. TAZOCILLINE [Concomitant]
     Active Substance: PIPERACILLIN SODIUM\TAZOBACTAM SODIUM
     Indication: ESCHERICHIA PYELONEPHRITIS
     Route: 065
     Dates: start: 20160805, end: 20160805
  53. RED BLOOD CELLS [Concomitant]
     Active Substance: HUMAN RED BLOOD CELL
     Route: 065
     Dates: start: 20160919, end: 20160920
  54. EPREX [Concomitant]
     Active Substance: ERYTHROPOIETIN
     Indication: ANAEMIA
     Route: 065
     Dates: start: 20160818
  55. PARACETAMOL [Concomitant]
     Active Substance: ACETAMINOPHEN
     Indication: PREMEDICATION
     Route: 065
     Dates: start: 20160929, end: 20160929
  56. ENDOXAN 1000 MG, POUDRE POUR SOLUTION INJECTABLE [Suspect]
     Active Substance: CYCLOPHOSPHAMIDE
     Indication: B-CELL LYMPHOMA
     Route: 042
     Dates: start: 20160617
  57. RITUXIMAB [Suspect]
     Active Substance: RITUXIMAB
     Dosage: MOST RECENT DOSE PRIOR TO THE EVENT NEUTROPENIA FEBRILE (SECOND EPISODE) AND SEPSIS E.COLI
     Route: 042
     Dates: start: 20160908
  58. DOXORUBICIN [Suspect]
     Active Substance: DOXORUBICIN
     Dosage: MOST RECENT DOSE PRIOR TO THE FEBRILE NEUTROPENIA FIRST EPISODE
     Route: 042
     Dates: start: 20160817
  59. VENETOCLAX [Suspect]
     Active Substance: VENETOCLAX
     Dosage: MOST RECENT DOSE
     Route: 048
     Dates: start: 20160930
  60. SIMVASTATINE [Concomitant]
     Active Substance: SIMVASTATIN
     Indication: HYPERCHOLESTEROLAEMIA
     Route: 065
  61. BACTRIM [Concomitant]
     Active Substance: SULFAMETHOXAZOLE\TRIMETHOPRIM
     Indication: INFECTION PROPHYLAXIS
     Route: 065
     Dates: start: 20160617
  62. PERFALGAN [Concomitant]
     Active Substance: ACETAMINOPHEN
     Indication: PREMEDICATION
     Route: 065
     Dates: start: 20160728, end: 20160728
  63. PERFALGAN [Concomitant]
     Active Substance: ACETAMINOPHEN
     Route: 065
     Dates: start: 20160817, end: 20160817
  64. RED BLOOD CELLS [Concomitant]
     Active Substance: HUMAN RED BLOOD CELL
     Route: 065
     Dates: start: 20160827, end: 20160828

REACTIONS (5)
  - Hypothermia [Recovered/Resolved]
  - Febrile neutropenia [Recovered/Resolved]
  - Escherichia bacteraemia [Recovered/Resolved]
  - Febrile neutropenia [Recovered/Resolved]
  - Inflammation [Recovered/Resolved]

NARRATIVE: CASE EVENT DATE: 20160826
